FAERS Safety Report 21964660 (Version 1)
Quarter: 2023Q1

REPORT INFORMATION
  Report Type: Spontaneous
  Country: US (occurrence: US)
  Receive Date: 20230207
  Receipt Date: 20230207
  Transmission Date: 20230418
  Serious: No
  Sender: FDA-Public Use
  Company Number: US-PURDUE PHARMA-USA-2022-0297979

PATIENT
  Sex: Female

DRUGS (1)
  1. BUPRENORPHINE [Suspect]
     Active Substance: BUPRENORPHINE
     Indication: Back pain
     Dosage: 5 MCG/HR
     Route: 062

REACTIONS (7)
  - Nervousness [Unknown]
  - Paraesthesia [Unknown]
  - Dizziness [Unknown]
  - Constipation [Unknown]
  - Nausea [Unknown]
  - Heart rate increased [Unknown]
  - Drug ineffective [Unknown]
